FAERS Safety Report 6631382-8 (Version None)
Quarter: 2010Q1

REPORT INFORMATION
  Report Type: 
  Country: None (occurrence: None)
  Receive Date: 20100311
  Receipt Date: 20100311
  Transmission Date: 20100710
  Serious: Yes (Hospitalization)
  Sender: FDA-Public Use
  Company Number: None

PATIENT
  Age: 53 Year
  Sex: Female
  Weight: 111.4 kg

DRUGS (1)
  1. AVASTIN [Suspect]
     Indication: ANGIOSARCOMA
     Dosage: 15 MG/KK/DAY EVERY 3 WEEKS IV BOLUS
     Route: 040
     Dates: start: 20090910, end: 20100310

REACTIONS (3)
  - BLOOD PRESSURE INCREASED [None]
  - DYSPNOEA [None]
  - OXYGEN SATURATION DECREASED [None]
